FAERS Safety Report 14338206 (Version 4)
Quarter: 2022Q1

REPORT INFORMATION
  Report Type: Spontaneous
  Country: US (occurrence: US)
  Receive Date: 20171229
  Receipt Date: 20220310
  Transmission Date: 20220423
  Serious: No
  Sender: FDA-Public Use
  Company Number: US-PFIZER INC-2017549721

PATIENT
  Age: 67 Year
  Sex: Female
  Weight: 108.41 kg

DRUGS (7)
  1. XELJANZ XR [Suspect]
     Active Substance: TOFACITINIB CITRATE
     Indication: Rheumatoid arthritis
     Dosage: 11 MG, DAILY
     Route: 048
     Dates: start: 2019, end: 2020
  2. XELJANZ XR [Suspect]
     Active Substance: TOFACITINIB CITRATE
     Indication: Psoriatic arthropathy
     Dosage: 11 MG, DAILY
     Dates: start: 202101
  3. SYNTHROID [Concomitant]
     Active Substance: LEVOTHYROXINE SODIUM
     Dosage: 224 UG, DAILY
  4. ARMOUR THYROID [Concomitant]
     Active Substance: THYROID, PORCINE
     Dosage: 15 UG, DAILY
  5. MELOXICAM [Concomitant]
     Active Substance: MELOXICAM
     Dosage: UNK
  6. MINERALS\VITAMINS [Concomitant]
     Active Substance: MINERALS\VITAMINS
     Dosage: 1 DF, DAILY
  7. TRAMADOL [Concomitant]
     Active Substance: TRAMADOL
     Indication: Muscle relaxant therapy
     Dosage: 2-3 TIMES A DAY

REACTIONS (7)
  - Vision blurred [Unknown]
  - Photophobia [Unknown]
  - Dry eye [Unknown]
  - COVID-19 [Unknown]
  - Pain [Unknown]
  - Peripheral swelling [Unknown]
  - Joint swelling [Unknown]
